FAERS Safety Report 24241720 (Version 2)
Quarter: 2024Q4

REPORT INFORMATION
  Report Type: Spontaneous
  Country: JP (occurrence: JP)
  Receive Date: 20240823
  Receipt Date: 20241031
  Transmission Date: 20250114
  Serious: Yes (Hospitalization)
  Sender: ROCHE
  Company Number: JP-CHUGAI-2024029229AA

PATIENT
  Age: 68 Year
  Sex: Female

DRUGS (4)
  1. PHESGO [Suspect]
     Active Substance: HYALURONIDASE-ZZXF\PERTUZUMAB\TRASTUZUMAB
     Indication: Breast cancer
     Dosage: UNK
     Route: 050
     Dates: start: 20240516, end: 2024
  2. PHESGO [Suspect]
     Active Substance: HYALURONIDASE-ZZXF\PERTUZUMAB\TRASTUZUMAB
     Dosage: UNK
     Route: 050
     Dates: start: 2024, end: 2024
  3. PHESGO [Suspect]
     Active Substance: HYALURONIDASE-ZZXF\PERTUZUMAB\TRASTUZUMAB
     Dosage: UNK
     Route: 050
     Dates: start: 2024, end: 2024
  4. PHESGO [Suspect]
     Active Substance: HYALURONIDASE-ZZXF\PERTUZUMAB\TRASTUZUMAB
     Dosage: UNK
     Route: 050
     Dates: start: 20240711

REACTIONS (3)
  - Autoimmune haemolytic anaemia [Unknown]
  - Systemic lupus erythematosus [Unknown]
  - Pyrexia [Unknown]

NARRATIVE: CASE EVENT DATE: 20240601
